FAERS Safety Report 15406475 (Version 3)
Quarter: 2018Q4

REPORT INFORMATION
  Report Type: Spontaneous
  Country: JP (occurrence: JP)
  Receive Date: 20180920
  Receipt Date: 20181130
  Transmission Date: 20190204
  Serious: Yes (Death)
  Sender: FDA-Public Use
  Company Number: JP-EISAI MEDICAL RESEARCH-EC-2018-045292

PATIENT
  Age: 18 Year
  Sex: Male

DRUGS (11)
  1. LAMICTAL [Interacting]
     Active Substance: LAMOTRIGINE
     Indication: EPILEPSY
     Route: 048
     Dates: start: 20180308, end: 20180826
  2. TEGRETOL [Interacting]
     Active Substance: CARBAMAZEPINE
     Dosage: UNKNOWN (LARGE AMOUNT)
     Route: 048
     Dates: start: 20170607, end: 20170607
  3. FYCOMPA [Interacting]
     Active Substance: PERAMPANEL
     Route: 048
     Dates: start: 20180827, end: 20180827
  4. VIMPAT [Interacting]
     Active Substance: LACOSAMIDE
     Indication: EPILEPSY
     Route: 048
     Dates: start: 20180308, end: 20180826
  5. VIMPAT [Interacting]
     Active Substance: LACOSAMIDE
     Route: 048
     Dates: start: 20180827, end: 20180827
  6. TEGRETOL [Interacting]
     Active Substance: CARBAMAZEPINE
     Route: 048
     Dates: start: 20180827, end: 20180827
  7. TEGRETOL [Interacting]
     Active Substance: CARBAMAZEPINE
     Indication: EPILEPSY
     Dosage: UNKNOWN
     Route: 048
  8. TEGRETOL [Interacting]
     Active Substance: CARBAMAZEPINE
     Route: 048
     Dates: start: 20180308, end: 20180826
  9. LAMICTAL [Interacting]
     Active Substance: LAMOTRIGINE
     Route: 048
     Dates: start: 20180827, end: 20180827
  10. FYCOMPA [Suspect]
     Active Substance: PERAMPANEL
     Indication: EPILEPSY
     Route: 048
     Dates: start: 20180308, end: 20180407
  11. FYCOMPA [Interacting]
     Active Substance: PERAMPANEL
     Route: 048
     Dates: start: 20180408, end: 20180826

REACTIONS (3)
  - Completed suicide [Fatal]
  - Toxicity to various agents [Fatal]
  - Irritability [Unknown]

NARRATIVE: CASE EVENT DATE: 201807
